FAERS Safety Report 7627208-6 (Version None)
Quarter: 2011Q3

REPORT INFORMATION
  Report Type: 
  Country: None (occurrence: None)
  Receive Date: 20110714
  Receipt Date: 20110701
  Transmission Date: 20111222
  Serious: Yes (Other)
  Sender: FDA-Public Use
  Company Number: GER/UKI/11/0018707

PATIENT
  Age: 69 Year
  Sex: Female
  Weight: 63.5 kg

DRUGS (10)
  1. DIAZEPAM [Concomitant]
  2. PHENOBARBITAL TAB [Concomitant]
  3. CLOPIDOGREL [Suspect]
     Indication: PRODUCT USED FOR UNKNOWN INDICATION
     Dosage: 75 MG;
     Dates: start: 20110419, end: 20110519
  4. CLOPIDOGREL [Suspect]
     Indication: PRODUCT USED FOR UNKNOWN INDICATION
     Dosage: 75 MG;
     Dates: start: 20110531
  5. ASPIRIN [Concomitant]
  6. EPANUTIN (PHENYTOIN) [Concomitant]
  7. BETAMETHASONE VALERATE [Concomitant]
  8. CO-DYDRAMOL (PARAMOL-118) [Concomitant]
  9. HYDROCORTISONE [Concomitant]
  10. DERMOL (CLOBETASOL PROPIONATE) [Concomitant]

REACTIONS (2)
  - SKIN IRRITATION [None]
  - RASH [None]
